FAERS Safety Report 5193641-8 (Version None)
Quarter: 2006Q4

REPORT INFORMATION
  Report Type: 
  Country: None (occurrence: None)
  Receive Date: 20061228
  Receipt Date: 20061129
  Transmission Date: 20070319
  Serious: Yes (Death, Hospitalization, Other)
  Sender: FDA-Public Use
  Company Number: FR-BRISTOL-MYERS SQUIBB COMPANY-13597265

PATIENT
  Age: 73 Year
  Sex: Female

DRUGS (6)
  1. COUMADIN [Suspect]
     Indication: HEART VALVE REPLACEMENT
     Route: 048
     Dates: end: 20061030
  2. CALCIPARINE [Interacting]
  3. TENORMIN [Concomitant]
  4. LASIX [Concomitant]
  5. SPECIAFOLDINE [Concomitant]
  6. TARDYFERON [Concomitant]

REACTIONS (7)
  - ANAEMIA [None]
  - CEREBRAL HAEMORRHAGE [None]
  - DRUG INTERACTION [None]
  - EPISTAXIS [None]
  - HAEMATURIA [None]
  - HEMIANOPIA [None]
  - RIGHT VENTRICULAR FAILURE [None]
